FAERS Safety Report 11563226 (Version 1)
Quarter: 2015Q3

REPORT INFORMATION
  Report Type: Spontaneous
  Country: US (occurrence: US)
  Receive Date: 20150916
  Receipt Date: 20150916
  Transmission Date: 20151125
  Serious: No
  Sender: FDA-Public Use
  Company Number: US-ELI_LILLY_AND_COMPANY-US200901003719

PATIENT
  Sex: Female

DRUGS (3)
  1. BONIVA [Concomitant]
     Active Substance: IBANDRONATE SODIUM
  2. FORTEO [Suspect]
     Active Substance: TERIPARATIDE
     Dates: start: 200812
  3. FORTEO [Suspect]
     Active Substance: TERIPARATIDE
     Dates: start: 2006, end: 2007

REACTIONS (1)
  - Bone density decreased [Unknown]
